FAERS Safety Report 25907585 (Version 1)
Quarter: 2025Q4

REPORT INFORMATION
  Report Type: Spontaneous
  Country: GB (occurrence: GB)
  Receive Date: 20251010
  Receipt Date: 20251010
  Transmission Date: 20260118
  Serious: Yes (Other)
  Sender: RANBAXY
  Company Number: GB-MHRA-MED-202509241311346640-RSKBL

PATIENT
  Sex: Male

DRUGS (1)
  1. RILUZOLE [Suspect]
     Active Substance: RILUZOLE
     Indication: Product used for unknown indication
     Dosage: 1TAB DAILY
     Route: 065

REACTIONS (1)
  - Abdominal discomfort [Unknown]
